FAERS Safety Report 4391951-5 (Version None)
Quarter: 2004Q3

REPORT INFORMATION
  Report Type: 
  Country: None (occurrence: None)
  Receive Date: 20040701
  Receipt Date: 20040614
  Transmission Date: 20050211
  Serious: Yes (Life-Threatening, Hospitalization, Other)
  Sender: FDA-Public Use
  Company Number: USA040568807

PATIENT
  Age: 60 Year
  Sex: Female
  Weight: 63 kg

DRUGS (11)
  1. FORTEO [Suspect]
     Indication: OSTEOPOROSIS
     Dosage: 20 UG DAY
     Dates: start: 20030901
  2. ACTOS [Concomitant]
  3. SYNTHROID [Concomitant]
  4. PREDNISONE [Concomitant]
  5. LIPITOR [Concomitant]
  6. ZETIA [Concomitant]
  7. TOPROL-XL [Concomitant]
  8. PROTONIX [Concomitant]
  9. DETROL LA (TOLTERODINE L-TARTRATE) [Concomitant]
  10. ASPIRIN [Concomitant]
  11. LASIX [Concomitant]

REACTIONS (10)
  - ANKLE FRACTURE [None]
  - APNOEA [None]
  - DRUG INEFFECTIVE [None]
  - FALL [None]
  - FULL BLOOD COUNT DECREASED [None]
  - MOBILITY DECREASED [None]
  - MULTIPLE FRACTURES [None]
  - OEDEMA PERIPHERAL [None]
  - PAIN [None]
  - POST PROCEDURAL COMPLICATION [None]
